FAERS Safety Report 5501221-7 (Version None)
Quarter: 2007Q4

REPORT INFORMATION
  Report Type: 
  Country: None (occurrence: None)
  Receive Date: 20071029
  Receipt Date: 20071019
  Transmission Date: 20080405
  Serious: Yes (Death, Hospitalization)
  Sender: FDA-Public Use
  Company Number: FR-PFIZER INC-2007087833

PATIENT
  Sex: Female

DRUGS (5)
  1. XANAX [Suspect]
  2. MEPROBAMATE [Concomitant]
  3. AMITRIPTYLINE HCL [Concomitant]
  4. MEPRONIZINE [Concomitant]
  5. KETOPROFEN [Concomitant]

REACTIONS (3)
  - DRUG TOXICITY [None]
  - LUNG DISORDER [None]
  - SUICIDE ATTEMPT [None]
